FAERS Safety Report 6506717-7 (Version None)
Quarter: 2009Q4

REPORT INFORMATION
  Report Type: 
  Country: None (occurrence: None)
  Receive Date: 20091221
  Receipt Date: 20091214
  Transmission Date: 20100525
  Serious: Yes (Hospitalization)
  Sender: FDA-Public Use
  Company Number: US-ROCHE-674674

PATIENT
  Sex: Female
  Weight: 68 kg

DRUGS (1)
  1. CAPECITABINE [Suspect]
     Indication: BREAST CANCER
     Route: 048
     Dates: start: 20091008

REACTIONS (2)
  - DEHYDRATION [None]
  - KIDNEY TRANSPLANT REJECTION [None]
